FAERS Safety Report 25429787 (Version 1)
Quarter: 2025Q2

REPORT INFORMATION
  Report Type: Spontaneous
  Country: US (occurrence: None)
  Receive Date: 20250612
  Receipt Date: 20250612
  Transmission Date: 20250717
  Serious: No
  Sender: FDA-CTU
  Company Number: None

PATIENT
  Age: 92 Year
  Sex: Female

DRUGS (1)
  1. LENALIDOMIDE [Suspect]
     Active Substance: LENALIDOMIDE
     Indication: Plasma cell myeloma
     Dosage: FREQUENCY : DAILY;?
     Route: 048
     Dates: start: 20241129

REACTIONS (4)
  - Dysarthria [None]
  - Transient ischaemic attack [None]
  - Carotid artery aneurysm [None]
  - Fibromuscular dysplasia [None]

NARRATIVE: CASE EVENT DATE: 20250527
